FAERS Safety Report 16880334 (Version 1)
Quarter: 2019Q4

REPORT INFORMATION
  Report Type: Other
  Country: GE (occurrence: GE)
  Receive Date: 20191003
  Receipt Date: 20191003
  Transmission Date: 20200122
  Serious: Yes (Other)
  Sender: FDA-Public Use
  Company Number: GE-FDC LIMITED-2075238

PATIENT
  Age: 50 Year
  Sex: Male

DRUGS (1)
  1. CIPROFLOXACIN. [Suspect]
     Active Substance: CIPROFLOXACIN
     Indication: INFECTION
     Route: 065

REACTIONS (2)
  - Drug-induced liver injury [Unknown]
  - Condition aggravated [Unknown]
